FAERS Safety Report 12323254 (Version 1)
Quarter: 2016Q2

REPORT INFORMATION
  Report Type: Spontaneous
  Country: US (occurrence: US)
  Receive Date: 20160502
  Receipt Date: 20160502
  Transmission Date: 20160815
  Serious: No
  Sender: FDA-Public Use
  Company Number: US-JNJFOC-20160319390

PATIENT
  Sex: Female
  Weight: 54.89 kg

DRUGS (5)
  1. CALCIUM [Concomitant]
     Active Substance: CALCIUM
     Route: 065
  2. PROLIA [Concomitant]
     Active Substance: DENOSUMAB
     Indication: OSTEOPOROSIS
     Route: 065
  3. LEVOTHYROXINE. [Concomitant]
     Active Substance: LEVOTHYROXINE
     Route: 065
  4. PREDNISONE. [Concomitant]
     Active Substance: PREDNISONE
     Route: 065
  5. REMICADE [Suspect]
     Active Substance: INFLIXIMAB
     Indication: SARCOIDOSIS
     Route: 042

REACTIONS (3)
  - Osteoporosis [Unknown]
  - Product use issue [Unknown]
  - Off label use [Unknown]
